FAERS Safety Report 9733898 (Version 2)
Quarter: 2014Q2

REPORT INFORMATION
  Report Type: Spontaneous
  Country: US (occurrence: US)
  Receive Date: 20131205
  Receipt Date: 20140529
  Transmission Date: 20141212
  Serious: Yes (Hospitalization)
  Sender: FDA-Public Use
  Company Number: US-MYLANLABS-2013S1026590

PATIENT
  Age: 36 Year
  Sex: Male

DRUGS (4)
  1. BALSALAZIDE [Suspect]
     Indication: COLITIS ULCERATIVE
     Route: 048
  2. BALSALAZIDE [Suspect]
     Indication: COLITIS ULCERATIVE
     Route: 048
  3. PREDNISONE [Concomitant]
     Indication: COLITIS ULCERATIVE
     Dosage: TAPER, DURATION OF DRUG ADMNISTRATION 4 WEEKS
     Route: 065
  4. MESALAZINE [Concomitant]
     Indication: COLITIS ULCERATIVE
     Dosage: ENEMA DOSE UNIT:4
     Route: 054

REACTIONS (2)
  - Pleuropericarditis [Recovered/Resolved]
  - Drug hypersensitivity [Recovered/Resolved]
